FAERS Safety Report 7097589-3 (Version None)
Quarter: 2010Q4

REPORT INFORMATION
  Report Type: 
  Country: None (occurrence: None)
  Receive Date: 20101111
  Receipt Date: 20101029
  Transmission Date: 20110411
  Serious: Yes (Hospitalization)
  Sender: FDA-Public Use
  Company Number: US-MYLANLABS-2010S1020365

PATIENT
  Age: 29 Year
  Sex: Female
  Weight: 73 kg

DRUGS (10)
  1. TOPIRAMATE [Suspect]
     Route: 048
  2. TOPIRAMATE [Suspect]
     Route: 048
  3. FLUOXETINE [Concomitant]
     Route: 048
  4. BACLOFEN [Concomitant]
     Route: 037
  5. PEG-3350 AND ELECTROLYTES [Concomitant]
     Route: 048
  6. BISACODYL [Concomitant]
     Route: 065
  7. SUMATRIPTAN SUCCINATE [Concomitant]
     Indication: MIGRAINE
     Dosage: AS NEEDED
     Route: 055
  8. PROMETHAZINE [Concomitant]
     Indication: MIGRAINE
     Dosage: AS NEEDED
     Route: 065
  9. PARACETAMOL [Concomitant]
     Dosage: AS NEEDED
     Route: 065
  10. LORAZEPAM [Concomitant]
     Dosage: EVERY 12 TO 24H AS NEEDED
     Route: 048

REACTIONS (3)
  - MYOCLONUS [None]
  - PSYCHOTIC DISORDER [None]
  - PYREXIA [None]
